FAERS Safety Report 14339355 (Version 2)
Quarter: 2018Q1

REPORT INFORMATION
  Report Type: Spontaneous
  Country: DE (occurrence: DE)
  Receive Date: 20171230
  Receipt Date: 20180308
  Transmission Date: 20180509
  Serious: Yes (Other)
  Sender: FDA-Public Use
  Company Number: DE-AUROBINDO-AUR-APL-2017-47968

PATIENT
  Age: 37 Year
  Sex: Female
  Weight: 95 kg

DRUGS (4)
  1. ZOVIRAX [Suspect]
     Active Substance: ACYCLOVIR
     Indication: HERPES VIRUS INFECTION
     Dosage: UNK
     Route: 050
  2. DACLIZUMAB [Suspect]
     Active Substance: DACLIZUMAB
     Indication: RELAPSING-REMITTING MULTIPLE SCLEROSIS
     Dosage: UNK (150 MG 1 M)
     Route: 058
     Dates: start: 20170209
  3. IBUPROFEN. [Concomitant]
     Active Substance: IBUPROFEN
     Indication: HEADACHE
     Dosage: UNK (800MG)
     Route: 065
  4. CEFUROXIME. [Suspect]
     Active Substance: CEFUROXIME
     Indication: LYMPHADENOPATHY
     Dosage: 1000 MG, 1D
     Route: 050
     Dates: start: 20170921, end: 20171001

REACTIONS (2)
  - Herpes virus infection [Recovered/Resolved]
  - Lymphadenopathy [Recovered/Resolved]

NARRATIVE: CASE EVENT DATE: 20170921
